FAERS Safety Report 8016975-8 (Version None)
Quarter: 2012Q1

REPORT INFORMATION
  Report Type: 
  Country: None (occurrence: None)
  Receive Date: 20120102
  Receipt Date: 20111227
  Transmission Date: 20120608
  Serious: Yes (Other)
  Sender: FDA-Public Use
  Company Number: PHEH2011US012502

PATIENT
  Age: 65 Year
  Sex: Female

DRUGS (8)
  1. RECLAST [Suspect]
     Dosage: UNK UKN, UNK
     Route: 042
  2. VITAMIN B-12 [Concomitant]
     Dosage: UNK UKN, UNK
  3. MAGNESIUM [Concomitant]
     Dosage: UNK UKN, UNK
  4. PANCREASE [Concomitant]
     Dosage: UNK UKN, UNK
  5. FISH OIL [Concomitant]
     Dosage: UNK UKN, UNK
  6. VITAMIN D [Concomitant]
     Dosage: UNK UKN, UNK
  7. CALCIUM ACETATE [Concomitant]
     Dosage: UNK UKN, UNK
  8. MULTI-VITAMIN [Concomitant]
     Dosage: UNK UKN, UNK

REACTIONS (4)
  - BONE PAIN [None]
  - PANCREATIC CARCINOMA [None]
  - PAIN IN EXTREMITY [None]
  - BODY TEMPERATURE INCREASED [None]
